FAERS Safety Report 24634678 (Version 1)
Quarter: 2024Q4

REPORT INFORMATION
  Report Type: Other
  Country: US (occurrence: US)
  Receive Date: 20241119
  Receipt Date: 20241119
  Transmission Date: 20250115
  Serious: No
  Sender: PAREXEL
  Company Number: US-Coherus Biosciences, Inc.-2024-COH-US000555

PATIENT

DRUGS (1)
  1. UDENYCA [Suspect]
     Active Substance: PEGFILGRASTIM-CBQV
     Indication: Product used for unknown indication
     Dosage: 6 MG/0.6 ML

REACTIONS (4)
  - Device malfunction [Unknown]
  - Device leakage [Unknown]
  - Device delivery system issue [Unknown]
  - No adverse event [Unknown]
